FAERS Safety Report 9637763 (Version 3)
Quarter: 2013Q4

REPORT INFORMATION
  Report Type: Spontaneous
  Country: ZA (occurrence: ZA)
  Receive Date: 20131022
  Receipt Date: 20131118
  Transmission Date: 20140711
  Serious: Yes (Other)
  Sender: FDA-Public Use
  Company Number: ZA-SA-2013SA105265

PATIENT
  Age: 45 Year
  Sex: Male

DRUGS (2)
  1. KETEK [Suspect]
     Indication: HAEMOPHILUS INFECTION
     Route: 048
  2. SERETIDE [Concomitant]
     Indication: ASTHMA

REACTIONS (1)
  - Pathogen resistance [Recovered/Resolved with Sequelae]
